FAERS Safety Report 18863975 (Version 6)
Quarter: 2021Q2

REPORT INFORMATION
  Report Type: Report from Study
  Country: US (occurrence: US)
  Receive Date: 20210209
  Receipt Date: 20210417
  Transmission Date: 20210717
  Serious: No
  Sender: FDA-Public Use
  Company Number: NVSC2021US025567

PATIENT
  Age: 59 Year
  Sex: Female

DRUGS (2)
  1. ENTRESTO [Suspect]
     Active Substance: SACUBITRIL\VALSARTAN
     Indication: CARDIAC FAILURE
     Dosage: 50 MG, BID (24/26)
     Route: 048
     Dates: start: 20210129
  2. STEROIDS [Concomitant]
     Active Substance: UNSPECIFIED INGREDIENT
     Indication: PRODUCT USED FOR UNKNOWN INDICATION
     Dosage: UNK, UNKNOWN
     Route: 065
     Dates: start: 20210405

REACTIONS (12)
  - Energy increased [Unknown]
  - Throat clearing [Unknown]
  - Product dose omission issue [Unknown]
  - Feeling abnormal [Unknown]
  - Cough [Unknown]
  - Nasopharyngitis [Unknown]
  - Pyrexia [Unknown]
  - Weight decreased [Unknown]
  - Insomnia [Unknown]
  - Feeling cold [Unknown]
  - Pain [Unknown]
  - Energy increased [Unknown]

NARRATIVE: CASE EVENT DATE: 20210131
